FAERS Safety Report 7035524-4 (Version None)
Quarter: 2010Q4

REPORT INFORMATION
  Report Type: 
  Country: None (occurrence: None)
  Receive Date: 20101008
  Receipt Date: 20100929
  Transmission Date: 20110411
  Serious: Yes (Hospitalization, Other)
  Sender: FDA-Public Use
  Company Number: PHMT2006CA01168

PATIENT
  Sex: Female

DRUGS (9)
  1. SANDOSTATIN LAR [Suspect]
     Indication: GLUCAGONOMA
     Dosage: 30MG EVERY 4 WEEKS
     Route: 030
     Dates: start: 20030120
  2. FLUOROURACIL [Concomitant]
     Dosage: CONTINUOUS VIA CADD PUMP
  3. ALTACE [Concomitant]
  4. CHEMOTHERAPEUTICS,OTHER [Concomitant]
  5. COUMADIN [Concomitant]
  6. INSULIN [Concomitant]
  7. PAXIL [Concomitant]
  8. ZYPREXA [Concomitant]
  9. SIMVASTATIN [Concomitant]

REACTIONS (15)
  - ABDOMINAL DISCOMFORT [None]
  - BLOOD PRESSURE DECREASED [None]
  - CHEST PAIN [None]
  - DIZZINESS [None]
  - DYSPNOEA [None]
  - HAEMOGLOBIN DECREASED [None]
  - HYPOGLYCAEMIA [None]
  - LYMPHOCYTE PERCENTAGE DECREASED [None]
  - MALIGNANT NEOPLASM PROGRESSION [None]
  - NEUTROPHIL COUNT DECREASED [None]
  - PANCREATIC CARCINOMA [None]
  - PANCREATIC DISORDER [None]
  - PLATELET COUNT DECREASED [None]
  - PRURITUS GENERALISED [None]
  - WHITE BLOOD CELL COUNT DECREASED [None]
